FAERS Safety Report 8966655 (Version 2)
Quarter: 2012Q4

REPORT INFORMATION
  Report Type: 
  Country: US (occurrence: US)
  Receive Date: 20121217
  Receipt Date: 20121227
  Transmission Date: 20130627
  Serious: Yes (Life-Threatening, Hospitalization, Other)
  Sender: FDA-Public Use
  Company Number: US-GENZYME-CLOF-1002434

PATIENT
  Age: 51 Year
  Sex: Male
  Weight: 93.98 kg

DRUGS (22)
  1. CLOLAR [Suspect]
     Indication: BONE MARROW CONDITIONING REGIMEN
     Dosage: 40 mg/m2, qd
     Route: 042
     Dates: start: 20100529, end: 20100602
  2. THYMOGLOBULIN [Suspect]
     Indication: BONE MARROW CONDITIONING REGIMEN
     Dosage: 126 mg, (day -11 to day -7)
     Route: 042
     Dates: start: 20100524, end: 20100528
  3. PREDNISOLONE [Suspect]
     Indication: GRAFT VERSUS HOST DISEASE
     Dosage: 90 mg, UNK
     Route: 065
     Dates: start: 201210
  4. PREDNISOLONE [Suspect]
     Dosage: 60 mg, UNK
     Route: 065
     Dates: start: 201210
  5. PREDNISOLONE [Suspect]
     Dosage: 50 mg, UNK
     Route: 065
     Dates: start: 201210
  6. SIMVASTATIN [Suspect]
     Indication: CORONARY ARTERY DISEASE
     Dosage: 40 mg, qd
     Route: 048
  7. ACYCLOVIR [Concomitant]
     Indication: PRODUCT USED FOR UNKNOWN INDICATION
     Dosage: 400 mg, bid
     Route: 048
  8. ARIPIPRAZOLE [Concomitant]
     Indication: PRODUCT USED FOR UNKNOWN INDICATION
     Dosage: 5 mg, qd
     Route: 048
  9. ATOVAQUONE [Concomitant]
     Indication: PRODUCT USED FOR UNKNOWN INDICATION
     Dosage: 10 ml, qd
     Route: 048
  10. CARVEDILOL [Concomitant]
     Indication: PRODUCT USED FOR UNKNOWN INDICATION
     Dosage: 37.5 mg, bid (one and half tablet)
     Route: 048
  11. CITALOPRAM [Concomitant]
     Indication: PRODUCT USED FOR UNKNOWN INDICATION
     Dosage: 40 mg, qd
     Route: 048
  12. FLUTICASONE [Concomitant]
     Indication: PRODUCT USED FOR UNKNOWN INDICATION
     Dosage: 2 aerosol inhaled
     Route: 065
  13. FOLIC ACID [Concomitant]
     Indication: PRODUCT USED FOR UNKNOWN INDICATION
     Dosage: 1 mg, bid
     Route: 048
  14. FUROSEMIDE [Concomitant]
     Indication: PRODUCT USED FOR UNKNOWN INDICATION
     Dosage: 20 mg, qd
     Route: 048
  15. HYDROCORTISONE [Concomitant]
     Indication: RASH
     Dosage: twice daily as needed for prn combination
     Route: 061
  16. KETOCONAZOLE [Concomitant]
     Indication: RASH
     Dosage: apply twice daily
     Route: 061
  17. LOSARTAN [Concomitant]
     Indication: PRODUCT USED FOR UNKNOWN INDICATION
     Dosage: 12.5 mg, qd
     Route: 048
  18. LANSOPRAZOLE [Concomitant]
     Indication: PRODUCT USED FOR UNKNOWN INDICATION
     Dosage: 1 DF, qd
     Route: 048
  19. TRAZODONE [Concomitant]
     Indication: INSOMNIA
     Dosage: half to one tablet daily
     Route: 048
  20. VARDENAFIL [Concomitant]
     Indication: PRODUCT USED FOR UNKNOWN INDICATION
     Dosage: 1 tab, daily prn
     Route: 048
  21. NICOTINE [Concomitant]
     Indication: NICOTINE DEPENDENCE
     Dosage: 1 Buccal lozenge, q4hr
     Route: 048
  22. ASPIRIN [Concomitant]
     Indication: PRODUCT USED FOR UNKNOWN INDICATION
     Dosage: 81 mg, qd
     Route: 048

REACTIONS (8)
  - Osteonecrosis [Unknown]
  - Blood alkaline phosphatase increased [Recovered/Resolved]
  - Hyperglycaemia [Recovered/Resolved]
  - Hip arthroplasty [Recovered/Resolved]
  - Graft versus host disease in lung [Not Recovered/Not Resolved]
  - Haemophilus infection [Recovered/Resolved]
  - Streptococcal bacteraemia [Recovered/Resolved]
  - Transaminases increased [Recovered/Resolved]
